FAERS Safety Report 7785270-4 (Version None)
Quarter: 2011Q3

REPORT INFORMATION
  Report Type: 
  Country: None (occurrence: None)
  Receive Date: 20110929
  Receipt Date: 20110919
  Transmission Date: 20111222
  Serious: Yes (Other)
  Sender: FDA-Public Use
  Company Number: US-JNJFOC-20110813100

PATIENT
  Sex: Male
  Weight: 119.75 kg

DRUGS (4)
  1. REMICADE [Suspect]
     Indication: SPONDYLOARTHROPATHY
     Route: 042
     Dates: start: 20060101, end: 20110601
  2. ENBREL [Concomitant]
     Route: 065
  3. ARAVA [Concomitant]
     Route: 065
  4. METHOTREXATE [Concomitant]
     Route: 065

REACTIONS (2)
  - ECCRINE CARCINOMA [None]
  - SKIN CANCER [None]
